FAERS Safety Report 5064758-3 (Version None)
Quarter: 2006Q3

REPORT INFORMATION
  Report Type: 
  Country: None (occurrence: None)
  Receive Date: 20060728
  Receipt Date: 20060719
  Transmission Date: 20061208
  Serious: Yes (Hospitalization)
  Sender: FDA-Public Use
  Company Number: FR-ROCHE-456426

PATIENT
  Age: 55 Year
  Sex: Female

DRUGS (11)
  1. ROVALCYTE [Suspect]
     Dosage: ADMINISTRATION ON WEDNESDAY AND SATURDAY. THE PATIENT RECEIVED 3 TO 4 ADMINISTRATIONS IN TOTAL.
     Route: 065
     Dates: start: 20060705
  2. NEORECORMON [Concomitant]
     Indication: ANAEMIA
     Dosage: DOSAGE INCREASED FROM 3000 IU ONCE A WEEK TO 10000 IU TWICE A WEEK DUE TO WORSENING OF ANAEMIA.
  3. CELLCEPT [Concomitant]
  4. CERTICAN [Concomitant]
  5. MIMPARA [Concomitant]
  6. ALPRESS [Concomitant]
  7. FUROSEMIDE [Concomitant]
  8. NEORAL [Concomitant]
  9. SOLUPRED [Concomitant]
  10. OMEPRAZOLE [Concomitant]
  11. RAMIPRIL [Concomitant]

REACTIONS (3)
  - ANAEMIA [None]
  - CONDITION AGGRAVATED [None]
  - MOUTH ULCERATION [None]
